FAERS Safety Report 17766626 (Version 3)
Quarter: 2021Q1

REPORT INFORMATION
  Report Type: Spontaneous
  Country: US (occurrence: US)
  Receive Date: 20200511
  Receipt Date: 20210308
  Transmission Date: 20210419
  Serious: No
  Sender: FDA-Public Use
  Company Number: US-VERTEX PHARMACEUTICALS-2020-010378

PATIENT
  Age: 11 Year
  Sex: Male
  Weight: 42 kg

DRUGS (20)
  1. TRIKAFTA [Suspect]
     Active Substance: ELEXACAFTOR\IVACAFTOR\TEZACAFTOR
     Indication: CYSTIC FIBROSIS
     Dosage: 2 TABS (100MG ELEXACAFTOR/50MG TEZACAFTOR/75MG IVACAFTOR) AM AND 1 TAB (150MG IVACAFTOR) PM
     Route: 048
     Dates: start: 20200422
  2. URSODIOL. [Concomitant]
     Active Substance: URSODIOL
     Dosage: 5 MILLIGRAM
     Route: 048
  3. ALBUTEROL [SALBUTAMOL] [Concomitant]
     Active Substance: ALBUTEROL
     Dosage: PRN
  4. PROAIR HFA [Concomitant]
     Active Substance: ALBUTEROL SULFATE
     Dosage: 90 MCG/ INH, 2 PUFFS, PRN
  5. PULMOZYME [Concomitant]
     Active Substance: DORNASE ALFA
     Dosage: 2.5 MILLILITER, QD
  6. ADVAIR HFA [Concomitant]
     Active Substance: FLUTICASONE PROPIONATE\SALMETEROL XINAFOATE
     Dosage: 2 PUFFS, BID
  7. CHOLECALCIFEROL [Concomitant]
     Active Substance: CHOLECALCIFEROL
     Dosage: 3 TABLETS
     Route: 048
  8. ZOLOFT [Concomitant]
     Active Substance: SERTRALINE HYDROCHLORIDE
     Dosage: 1.5 TAB, QD
     Route: 048
  9. KEPPRA [Concomitant]
     Active Substance: LEVETIRACETAM
     Dosage: 2 TABLET, BID
     Route: 048
  10. PERTZYE [Concomitant]
     Active Substance: PANCRELIPASE AMYLASE\PANCRELIPASE LIPASE\PANCRELIPASE PROTEASE
     Dosage: 5 CAPS WITH MEALS AND 5 CAPS WITH SNACKS
     Route: 048
  11. RELIZORB [Concomitant]
  12. ALBUTEROL HFA [Concomitant]
     Active Substance: ALBUTEROL SULFATE
     Dosage: 90 MCG/ ACTUATION (INHALE 2 PUFFS INTO LUNGS EVERY FOUR HOURS AS NEEDED)
  13. VITAMIN D3 [Concomitant]
     Active Substance: CHOLECALCIFEROL
     Dosage: 3 TABLET, QD
     Route: 048
  14. LIDOCAINE. [Concomitant]
     Active Substance: LIDOCAINE
     Dosage: 1 APPLICATION AS NEEDED, QD
  15. LMX4 [Concomitant]
     Active Substance: LIDOCAINE
     Dosage: 1 APPLICATION OF TOPICAL CREAM
     Route: 061
  16. HEPARIN [Concomitant]
     Active Substance: HEPARIN SODIUM
     Dosage: 300 UNITS (ONCE)
     Dates: start: 20201008, end: 20201008
  17. PREVACID [Concomitant]
     Active Substance: LANSOPRAZOLE
     Dosage: 30 MILLIGRAM, QD
     Route: 048
  18. CETIRIZINE [Concomitant]
     Active Substance: CETIRIZINE HYDROCHLORIDE
     Dosage: 5 MG, QD
     Route: 048
  19. FLONASE [MOMETASONE FUROATE] [Concomitant]
     Active Substance: MOMETASONE FUROATE
     Dosage: 0.05 MG/ INH NASAL SPRAY
     Route: 045
  20. HYPERTONIC SALINE SOLUTION [Concomitant]
     Active Substance: SODIUM CHLORIDE
     Dosage: 4 MILLILITER, BID

REACTIONS (2)
  - Initial insomnia [Not Recovered/Not Resolved]
  - Headache [Recovered/Resolved]

NARRATIVE: CASE EVENT DATE: 202004
